FAERS Safety Report 7161727 (Version 3)
Quarter: 2014Q2

REPORT INFORMATION
  Report Type: Spontaneous
  Country: US (occurrence: US)
  Receive Date: 20091029
  Receipt Date: 20140623
  Transmission Date: 20141212
  Serious: Yes (Other)
  Sender: FDA-Public Use
  Company Number: US-ROCHE-664687

PATIENT
  Age: 47 Year
  Sex: Male

DRUGS (1)
  1. ENFUVIRTIDE [Suspect]
     Indication: HIV INFECTION
     Route: 058

REACTIONS (1)
  - Amyloidosis [Unknown]
